FAERS Safety Report 4270455-4 (Version None)
Quarter: 2004Q1

REPORT INFORMATION
  Report Type: 
  Country: None (occurrence: None)
  Receive Date: 20040114
  Receipt Date: 20031121
  Transmission Date: 20041129
  Serious: Yes (Hospitalization)
  Sender: FDA-Public Use
  Company Number: FR-GLAXOSMITHKLINE-B0315640A

PATIENT
  Age: 60 Year
  Sex: Male
  Weight: 65 kg

DRUGS (4)
  1. MALARONE [Suspect]
     Indication: MALARIA PROPHYLAXIS
     Dosage: 250MG PER DAY
     Route: 048
     Dates: start: 20031023, end: 20031104
  2. ZYRTEC [Suspect]
     Indication: RASH
     Dosage: 10MG PER DAY
     Route: 048
     Dates: start: 20031104, end: 20031107
  3. DAFALGAN [Suspect]
     Dosage: 500MG PER DAY
     Route: 048
     Dates: start: 20031031, end: 20031031
  4. XATRAL [Suspect]
     Indication: BENIGN PROSTATIC HYPERPLASIA
     Route: 048
     Dates: end: 20031114

REACTIONS (12)
  - CSF LYMPHOCYTE COUNT INCREASED [None]
  - DYSAESTHESIA [None]
  - EOSINOPHILIA [None]
  - FACIAL PALSY [None]
  - HOT FLUSH [None]
  - HYPERHIDROSIS [None]
  - LEUKOENCEPHALOPATHY [None]
  - LOCALISED EXFOLIATION [None]
  - MENINGISM [None]
  - NERVE ROOT LESION [None]
  - PARAESTHESIA [None]
  - RASH MORBILLIFORM [None]
